FAERS Safety Report 21475690 (Version 2)
Quarter: 2023Q2

REPORT INFORMATION
  Report Type: Spontaneous
  Country: US (occurrence: US)
  Receive Date: 20221019
  Receipt Date: 20230427
  Transmission Date: 20230722
  Serious: No
  Sender: FDA-Public Use
  Company Number: US-ABBVIE-4153748

PATIENT
  Age: 61 Year
  Sex: Male

DRUGS (2)
  1. IMBRUVICA [Suspect]
     Active Substance: IBRUTINIB
     Indication: Neoplasm malignant
     Dosage: FORM STRENGTH WAS 560 MILLIGRAM
     Route: 048
     Dates: start: 20220831, end: 20220906
  2. IMBRUVICA [Suspect]
     Active Substance: IBRUTINIB
     Indication: Neoplasm malignant
     Route: 048
     Dates: start: 20220924

REACTIONS (8)
  - Oral mucosal blistering [Unknown]
  - Platelet count decreased [Unknown]
  - Weight decreased [Unknown]
  - Contusion [Unknown]
  - Muscle spasms [Unknown]
  - Hypophagia [Unknown]
  - Product use in unapproved indication [Unknown]
  - Neutrophil count decreased [Unknown]

NARRATIVE: CASE EVENT DATE: 20220831
